FAERS Safety Report 21120016 (Version 1)
Quarter: 2022Q3

REPORT INFORMATION
  Report Type: Spontaneous
  Country: JP (occurrence: JP)
  Receive Date: 20220722
  Receipt Date: 20220722
  Transmission Date: 20221027
  Serious: Yes (Hospitalization)
  Sender: FDA-Public Use
  Company Number: JP-MYLANLABS-2022M1079717

PATIENT
  Age: 46 Year
  Sex: Male
  Weight: 126 kg

DRUGS (10)
  1. DOPAMINE [Suspect]
     Active Substance: DOPAMINE HYDROCHLORIDE
     Indication: Hypotension
     Route: 042
  2. DOBUTAMINE [Suspect]
     Active Substance: DOBUTAMINE HYDROCHLORIDE
     Indication: Hypotension
     Route: 042
  3. CARVEDILOL [Suspect]
     Active Substance: CARVEDILOL
     Indication: Cardiac failure chronic
     Route: 065
  4. TOLVAPTAN [Suspect]
     Active Substance: TOLVAPTAN
     Indication: Ejection fraction decreased
     Route: 065
  5. SPIRONOLACTONE [Suspect]
     Active Substance: SPIRONOLACTONE
     Indication: Ejection fraction decreased
     Route: 065
  6. FUROSEMIDE [Suspect]
     Active Substance: FUROSEMIDE
     Indication: Ejection fraction decreased
     Route: 042
  7. FUROSEMIDE [Suspect]
     Active Substance: FUROSEMIDE
     Indication: Hypotension
  8. NOREPINEPHRINE [Suspect]
     Active Substance: NOREPINEPHRINE
     Indication: Hypotension
     Route: 042
  9. WARFARIN [Concomitant]
     Active Substance: WARFARIN
     Indication: Cardiac failure chronic
     Route: 065
  10. CANDESARTAN [Concomitant]
     Active Substance: CANDESARTAN
     Indication: Cardiac failure chronic
     Route: 065

REACTIONS (1)
  - Drug ineffective [Unknown]
